FAERS Safety Report 15555022 (Version 20)
Quarter: 2023Q4

REPORT INFORMATION
  Report Type: Other
  Country: CA (occurrence: CA)
  Receive Date: 20181026
  Receipt Date: 20231016
  Transmission Date: 20240109
  Serious: Yes (Other)
  Sender: FDA-Public Use
  Company Number: None

PATIENT
  Age: 27 Year
  Sex: Female

DRUGS (26)
  1. CHLORHEXIDINE [Suspect]
     Active Substance: CHLORHEXIDINE\CHLORHEXIDINE GLUCONATE
     Indication: Gingival hypertrophy
     Dosage: UNK
  2. ASPIRIN [Suspect]
     Active Substance: ASPIRIN
     Indication: Prophylaxis
     Dosage: UNK
  3. ASPIRIN [Suspect]
     Active Substance: ASPIRIN
     Indication: Product used for unknown indication
     Dosage: UNK
     Route: 065
  4. DICLECTIN [Suspect]
     Active Substance: DOXYLAMINE SUCCINATE\PYRIDOXINE HYDROCHLORIDE
     Indication: Prophylaxis
     Dosage: UNK
     Route: 048
  5. DICLECTIN [Suspect]
     Active Substance: DOXYLAMINE SUCCINATE\PYRIDOXINE HYDROCHLORIDE
     Dosage: UNK
     Route: 065
  6. SILDENAFIL [Suspect]
     Active Substance: SILDENAFIL
     Indication: Foetal growth restriction
     Dosage: 60 MILLIGRAM DAILY
     Route: 065
  7. SILDENAFIL [Suspect]
     Active Substance: SILDENAFIL
     Dosage: 20 MG, 2 EVERY 1 DAY(S)
     Route: 048
  8. SILDENAFIL [Suspect]
     Active Substance: SILDENAFIL
     Dosage: 20 MG, 6 HOUR
     Route: 048
  9. SILDENAFIL [Suspect]
     Active Substance: SILDENAFIL
     Dosage: UNK
     Route: 048
  10. SILDENAFIL [Suspect]
     Active Substance: SILDENAFIL
     Dosage: 40 MILLIGRAM DAILY
     Route: 065
  11. SILDENAFIL [Suspect]
     Active Substance: SILDENAFIL
     Dosage: 20 MG, 3 EVERY 1 DAY(S)
     Route: 065
  12. SILDENAFIL [Suspect]
     Active Substance: SILDENAFIL
     Dosage: 20 MG, 4 EVERY 1 DAY(S)
     Route: 048
  13. INSULIN NOS [Suspect]
     Active Substance: INSULIN NOS
     Indication: Type 2 diabetes mellitus
     Dosage: UNK
     Route: 048
  14. NIFEDIPINE [Suspect]
     Active Substance: NIFEDIPINE
     Indication: Hypertension
     Dosage: 20 MG, 1X/DAY
  15. NIFEDIPINE [Suspect]
     Active Substance: NIFEDIPINE
     Dosage: 20 MG, 3 EVERY 1 DAY(S)
     Route: 023
  16. NIFEDIPINE [Suspect]
     Active Substance: NIFEDIPINE
     Dosage: 20 MG
     Route: 048
  17. NIFEDIPINE [Suspect]
     Active Substance: NIFEDIPINE
     Dosage: 60 MG, 2 EVERY 1 DAY(S)
  18. NIFEDIPINE [Suspect]
     Active Substance: NIFEDIPINE
     Dosage: 120 MILLIGRAM DAILY
     Route: 065
  19. NIFEDIPINE [Suspect]
     Active Substance: NIFEDIPINE
     Dosage: 20 MG
     Route: 048
  20. NIFEDIPINE [Suspect]
     Active Substance: NIFEDIPINE
     Dosage: 20 MG, 2 EVERY 1 DAY(S)
  21. NIFEDIPINE [Suspect]
     Active Substance: NIFEDIPINE
     Dosage: UNK
  22. METHYLDOPA [Suspect]
     Active Substance: METHYLDOPA
     Indication: Hypertension
     Dosage: UNK
     Route: 048
  23. METHYLDOPA [Suspect]
     Active Substance: METHYLDOPA
     Dosage: UNK
     Route: 048
  24. METFORMIN [Suspect]
     Active Substance: METFORMIN HYDROCHLORIDE
     Indication: Type 2 diabetes mellitus
     Dosage: UNK
     Route: 065
  25. METFORMIN [Suspect]
     Active Substance: METFORMIN HYDROCHLORIDE
     Dosage: UNK
     Route: 065
  26. ERGOCALCIFEROL [Suspect]
     Active Substance: ERGOCALCIFEROL
     Indication: Prophylaxis
     Route: 065

REACTIONS (3)
  - Premature delivery [Unknown]
  - Off label use [Unknown]
  - Maternal exposure during pregnancy [Unknown]
